FAERS Safety Report 26144941 (Version 1)
Quarter: 2025Q4

REPORT INFORMATION
  Report Type: Spontaneous
  Country: CN (occurrence: CN)
  Receive Date: 20251211
  Receipt Date: 20251211
  Transmission Date: 20260118
  Serious: Yes (Life-Threatening, Other)
  Sender: SANDOZ
  Company Number: CN-SANDOZ-SDZ2025CN093340

PATIENT
  Age: 78 Year
  Sex: Female
  Weight: 60 kg

DRUGS (2)
  1. VORICONAZOLE [Suspect]
     Active Substance: VORICONAZOLE
     Indication: Antifungal treatment
     Dosage: 0.2 MG/L, BID
     Route: 041
     Dates: start: 20251120, end: 20251126
  2. VORICONAZOLE [Suspect]
     Active Substance: VORICONAZOLE
     Indication: Antifungal treatment
     Dosage: 200 MG, BID
     Route: 048
     Dates: start: 20251119, end: 20251120

REACTIONS (7)
  - Pneumonia [Not Recovered/Not Resolved]
  - Disease progression [Not Recovered/Not Resolved]
  - Respiratory failure [Not Recovered/Not Resolved]
  - Hepatic function abnormal [Recovering/Resolving]
  - Electrolyte imbalance [Recovering/Resolving]
  - Hypocalcaemia [Recovering/Resolving]
  - Hyperchloraemia [Recovering/Resolving]

NARRATIVE: CASE EVENT DATE: 20251101
